FAERS Safety Report 14473817 (Version 11)
Quarter: 2019Q1

REPORT INFORMATION
  Report Type: Spontaneous
  Country: US (occurrence: US)
  Receive Date: 20180201
  Receipt Date: 20190211
  Transmission Date: 20190417
  Serious: No
  Sender: FDA-Public Use
  Company Number: US-PFIZER INC-2018041621

PATIENT
  Age: 68 Year
  Sex: Female
  Weight: 45 kg

DRUGS (5)
  1. LORAZEPAM. [Concomitant]
     Active Substance: LORAZEPAM
     Indication: ANXIETY
     Dosage: SHE TAKES IT ONCE IN A WHILE
  2. XELJANZ [Suspect]
     Active Substance: TOFACITINIB CITRATE
     Dosage: 20 MG, DAILY (2, 10MG A DAY)
  3. LORAZEPAM. [Concomitant]
     Active Substance: LORAZEPAM
     Indication: POST-TRAUMATIC STRESS DISORDER
     Dosage: 5 MG, AS NEEDED [1 PER DAY]
  4. XELJANZ [Suspect]
     Active Substance: TOFACITINIB CITRATE
     Indication: RHEUMATOID ARTHRITIS
     Dosage: 5 MG, 2X/DAY
     Route: 048
     Dates: start: 2017
  5. XELJANZ [Suspect]
     Active Substance: TOFACITINIB CITRATE
     Dosage: 5 MG, 1X/DAY (FOR ABOUT A WEEK)
     Route: 048
     Dates: start: 20180123, end: 2018

REACTIONS (13)
  - Pruritus generalised [Recovered/Resolved]
  - Weight decreased [Recovered/Resolved]
  - Pain [Recovered/Resolved]
  - Lymphadenitis [Recovered/Resolved]
  - Intentional product use issue [Unknown]
  - Product use issue [Unknown]
  - Malaise [Recovered/Resolved]
  - Urticaria [Recovered/Resolved]
  - Arthritis [Recovered/Resolved]
  - Viral infection [Recovered/Resolved]
  - Arthropathy [Recovered/Resolved]
  - Drug ineffective [Unknown]
  - Gait disturbance [Recovered/Resolved]

NARRATIVE: CASE EVENT DATE: 2017
